FAERS Safety Report 17520701 (Version 1)
Quarter: 2020Q1

REPORT INFORMATION
  Report Type: Spontaneous
  Country: US (occurrence: US)
  Receive Date: 20200309
  Receipt Date: 20200309
  Transmission Date: 20200409
  Serious: Yes (Other)
  Sender: FDA-Public Use
  Company Number: NVSC2020US049632

PATIENT
  Age: 77 Year
  Sex: Female

DRUGS (1)
  1. IMATINIB. [Suspect]
     Active Substance: IMATINIB MESYLATE
     Indication: GASTROINTESTINAL STROMAL TUMOUR
     Dosage: 400 MG, QD
     Route: 048

REACTIONS (4)
  - Rash maculo-papular [Recovering/Resolving]
  - Rash macular [Recovering/Resolving]
  - Dermatitis [Recovering/Resolving]
  - Skin hyperpigmentation [Recovering/Resolving]
